FAERS Safety Report 12433996 (Version 2)
Quarter: 2021Q1

REPORT INFORMATION
  Report Type: Spontaneous
  Country: US (occurrence: US)
  Receive Date: 20160603
  Receipt Date: 20210115
  Transmission Date: 20210419
  Serious: Yes (Life-Threatening, Hospitalization)
  Sender: FDA-Public Use
  Company Number: US-MYLANLABS-2016M1023056

PATIENT
  Age: 28 Year
  Sex: Female

DRUGS (5)
  1. CIMETIDINE [Suspect]
     Active Substance: CIMETIDINE
     Dosage: 2000 MILLIGRAM, QD
     Route: 048
  2. GABAPENTIN. [Concomitant]
     Active Substance: GABAPENTIN
     Indication: PRODUCT USED FOR UNKNOWN INDICATION
     Dosage: UNK
     Route: 065
  3. LOPERAMIDE [Suspect]
     Active Substance: LOPERAMIDE
     Dosage: DOSAGE: 400?600MG DAILY
     Route: 048
  4. CIMETIDINE [Suspect]
     Active Substance: CIMETIDINE
     Indication: DRUG WITHDRAWAL SYNDROME
     Dosage: 200 MG TABLETS, 10 TABLETS DAILY
     Route: 048
  5. LOPERAMIDE [Suspect]
     Active Substance: LOPERAMIDE
     Indication: DRUG WITHDRAWAL SYNDROME
     Dosage: 2MG, APPROXIMATELY 100....
     Route: 048

REACTIONS (13)
  - Electrocardiogram T wave inversion [Recovering/Resolving]
  - Sinus bradycardia [Recovering/Resolving]
  - Electrocardiogram QT prolonged [Recovering/Resolving]
  - Electrocardiogram T wave amplitude decreased [Recovered/Resolved]
  - Intentional overdose [Recovering/Resolving]
  - Syncope [Recovering/Resolving]
  - Electrocardiogram QRS complex prolonged [Recovering/Resolving]
  - Ventricular extrasystoles [Recovered/Resolved]
  - Torsade de pointes [Recovering/Resolving]
  - Drug interaction [Recovering/Resolving]
  - Ventricular arrhythmia [Recovered/Resolved]
  - Myoclonus [Recovered/Resolved]
  - Drug abuse [Recovering/Resolving]
